FAERS Safety Report 11384594 (Version 1)
Quarter: 2015Q3

REPORT INFORMATION
  Report Type: Spontaneous
  Country: US (occurrence: US)
  Receive Date: 20150811
  Receipt Date: 20150811
  Transmission Date: 20151125
  Serious: No
  Sender: FDA-Public Use
  Company Number: US-ELI_LILLY_AND_COMPANY-US201105002780

PATIENT
  Sex: Male

DRUGS (4)
  1. CIALIS [Suspect]
     Active Substance: TADALAFIL
     Indication: ERECTILE DYSFUNCTION
     Dosage: 5 MG, QD
  2. NAPROXEN. [Concomitant]
     Active Substance: NAPROXEN
  3. CIALIS [Suspect]
     Active Substance: TADALAFIL
     Dosage: 25 MG, UNK
  4. BIAXIN [Concomitant]
     Active Substance: CLARITHROMYCIN

REACTIONS (2)
  - Intentional overdose [Unknown]
  - Drug ineffective [Recovered/Resolved]
